FAERS Safety Report 6139432-2 (Version None)
Quarter: 2009Q2

REPORT INFORMATION
  Report Type: 
  Country: None (occurrence: None)
  Receive Date: 20090401
  Receipt Date: 20090324
  Transmission Date: 20091009
  Serious: Yes (Other)
  Sender: FDA-Public Use
  Company Number: PHEH2009US02989

PATIENT
  Sex: Male

DRUGS (2)
  1. TASIGNA [Suspect]
     Indication: CHRONIC MYELOID LEUKAEMIA
     Dosage: 400 MG, BID
     Route: 048
     Dates: start: 20090310, end: 20090325
  2. TASIGNA [Suspect]
     Dosage: 200 MG, BID
     Route: 048

REACTIONS (3)
  - HYPOTENSION [None]
  - LOSS OF CONSCIOUSNESS [None]
  - NAUSEA [None]
